FAERS Safety Report 7215669-6 (Version None)
Quarter: 2011Q1

REPORT INFORMATION
  Report Type: 
  Country: None (occurrence: None)
  Receive Date: 20110107
  Receipt Date: 20110104
  Transmission Date: 20110831
  Serious: Yes (Hospitalization)
  Sender: FDA-Public Use
  Company Number: US-AMGEN-USASP2010007608

PATIENT

DRUGS (10)
  1. COUMADIN [Concomitant]
  2. ATENOLOL [Concomitant]
  3. NPLATE [Suspect]
     Indication: IDIOPATHIC THROMBOCYTOPENIC PURPURA
     Dosage: 4 A?G, UNK
     Dates: start: 20090702
  4. VITAMIN D [Concomitant]
  5. CORTICOSTEROIDS [Concomitant]
     Indication: IDIOPATHIC THROMBOCYTOPENIC PURPURA
  6. NPLATE [Suspect]
     Dates: start: 20090702
  7. PLAQUENIL [Concomitant]
  8. NORCO [Concomitant]
  9. TRIAMTERENE [Concomitant]
  10. CARDIZEM [Concomitant]

REACTIONS (1)
  - PULMONARY EMBOLISM [None]
